FAERS Safety Report 17372653 (Version 1)
Quarter: 2020Q1

REPORT INFORMATION
  Report Type: Report from Study
  Country: CO (occurrence: CO)
  Receive Date: 20200205
  Receipt Date: 20200205
  Transmission Date: 20200409
  Serious: Yes (Other)
  Sender: FDA-Public Use
  Company Number: CO-JNJFOC-20200149571

PATIENT
  Sex: Male
  Weight: 89 kg

DRUGS (1)
  1. STELARA [Suspect]
     Active Substance: USTEKINUMAB
     Indication: PSORIASIS
     Dosage: WEEK 0 DOSE 45 MG/0.5ML
     Route: 058
     Dates: start: 201910, end: 201910

REACTIONS (1)
  - Hepatic steatosis [Not Recovered/Not Resolved]
